FAERS Safety Report 9846819 (Version 1)
Quarter: 2013Q4

REPORT INFORMATION
  Report Type: Spontaneous
  Country: US (occurrence: None)
  Receive Date: 20131219
  Receipt Date: 20131219
  Transmission Date: 20140711
  Serious: Yes (Disabling)
  Sender: FDA-Public Use
  Company Number: 163-20785-13073647

PATIENT
  Age: 72 Year
  Sex: Male

DRUGS (1)
  1. THALIDOMIDE (THALIDOMIDE) [Suspect]
     Indication: PLASMA CELL MYELOMA
     Dosage: 200 MG, 1 IN 1 D, PO  THERAPY DATES SEP/2007 - UNKNOWN
     Route: 048
     Dates: start: 200709

REACTIONS (1)
  - Neuropathy peripheral [None]
